FAERS Safety Report 7815001-0 (Version None)
Quarter: 2011Q4

REPORT INFORMATION
  Report Type: 
  Country: None (occurrence: None)
  Receive Date: 20111014
  Receipt Date: 20110713
  Transmission Date: 20120403
  Serious: Yes (Hospitalization)
  Sender: FDA-Public Use
  Company Number: FR-GLAXOSMITHKLINE-B0733110A

PATIENT
  Sex: Female

DRUGS (12)
  1. PRAVASTATIN [Concomitant]
     Dosage: 20MG PER DAY
     Route: 048
  2. TRAMADOL HCL [Concomitant]
     Dosage: 200MG PER DAY
     Route: 048
  3. XANAX [Concomitant]
     Dosage: .5MG PER DAY
     Route: 048
  4. ARIXTRA [Suspect]
     Indication: THROMBOSIS PROPHYLAXIS
     Dosage: 2.5MG PER DAY
     Route: 058
     Dates: start: 20110711, end: 20110713
  5. LOVENOX [Suspect]
     Indication: THROMBOSIS PROPHYLAXIS
     Dosage: .4ML PER DAY
     Route: 058
     Dates: start: 20110627, end: 20110710
  6. NEXIUM [Concomitant]
     Route: 065
  7. PLAVIX [Concomitant]
     Dosage: 75MG PER DAY
     Route: 048
  8. RAMIPRIL [Concomitant]
     Dosage: 2.5MG PER DAY
     Route: 048
  9. ASPIRIN [Concomitant]
     Indication: CAROTID ARTERY STENOSIS
     Route: 065
  10. NEUROLEPTIC [Concomitant]
     Route: 065
  11. HALDOL [Concomitant]
     Dosage: 100MG PER DAY
     Route: 030
  12. AKINETON [Concomitant]
     Dosage: 1UNIT PER DAY
     Route: 048

REACTIONS (2)
  - THROMBOPHLEBITIS [None]
  - DRUG INEFFECTIVE [None]
